FAERS Safety Report 9938001 (Version 10)
Quarter: 2016Q1

REPORT INFORMATION
  Report Type: Report from Study
  Country: CA (occurrence: CA)
  Receive Date: 20140303
  Receipt Date: 20160304
  Transmission Date: 20160526
  Serious: Yes (Life-Threatening, Hospitalization, Disabling)
  Sender: FDA-Public Use
  Company Number: CA-ROCHE-1023280

PATIENT
  Age: 60 Year
  Sex: Male
  Weight: 108.6 kg

DRUGS (88)
  1. DOXORUBICINE [Suspect]
     Active Substance: DOXORUBICIN
     Indication: DIFFUSE LARGE B-CELL LYMPHOMA
     Dosage: MOST RECENT DOSE PRIOR TO ANTHRACYCLINE CARDIOMYOPATHY, NON ST ELEVATION MI: 111 MG ON 02/APR/2012?D
     Route: 042
     Dates: start: 20111205
  2. NPH INSULIN [Concomitant]
     Active Substance: INSULIN BEEF
     Indication: DIABETES MELLITUS
  3. AVAPRO [Concomitant]
     Active Substance: IRBESARTAN
     Route: 065
     Dates: start: 20120725
  4. FLUDROCORTISONE [Concomitant]
     Active Substance: FLUDROCORTISONE
     Indication: PYREXIA
     Route: 065
     Dates: start: 20120109, end: 20120109
  5. FLUDROCORTISONE [Concomitant]
     Active Substance: FLUDROCORTISONE
     Route: 065
     Dates: start: 20120703, end: 20120725
  6. FLUDROCORTISONE [Concomitant]
     Active Substance: FLUDROCORTISONE
     Route: 065
     Dates: start: 20121117, end: 20121121
  7. HUMULIN NOS [Concomitant]
     Active Substance: INSULIN HUMAN
     Route: 065
     Dates: start: 20121117, end: 20121121
  8. HUMULIN NOS [Concomitant]
     Active Substance: INSULIN HUMAN
     Route: 065
     Dates: start: 20140423, end: 20140423
  9. VALTREX [Concomitant]
     Active Substance: VALACYCLOVIR HYDROCHLORIDE
     Indication: HERPES SIMPLEX
     Route: 065
     Dates: start: 20120423
  10. MORPHINE [Concomitant]
     Active Substance: MORPHINE
     Indication: PAIN
     Route: 065
     Dates: start: 20120707, end: 20120725
  11. DOCUSATE SODIUM. [Concomitant]
     Active Substance: DOCUSATE SODIUM
     Indication: CONSTIPATION
     Route: 065
     Dates: start: 20120707, end: 20120725
  12. RABEPRAZOLE [Concomitant]
     Active Substance: RABEPRAZOLE
     Indication: DYSPEPSIA
     Route: 065
     Dates: start: 20130211
  13. ACETAMINOPHEN. [Concomitant]
     Active Substance: ACETAMINOPHEN
     Indication: PAIN
     Dosage: 4 HOURLY AS NECESSARY
     Route: 065
     Dates: start: 20120410, end: 20120416
  14. CRESTOR [Concomitant]
     Active Substance: ROSUVASTATIN CALCIUM
     Indication: HYPERCHOLESTEROLAEMIA
  15. FLUDROCORTISONE [Concomitant]
     Active Substance: FLUDROCORTISONE
     Indication: ADDISON^S DISEASE
     Route: 065
     Dates: start: 20120725, end: 20120725
  16. HEPARIN (BOLUS) [Concomitant]
     Indication: DEEP VEIN THROMBOSIS
     Route: 065
     Dates: start: 20140717, end: 20140717
  17. NACL 0.9% BOLUS [Concomitant]
     Indication: ADRENAL INSUFFICIENCY
     Route: 065
     Dates: start: 20140421, end: 20140421
  18. NACL 0.9% BOLUS [Concomitant]
     Route: 065
     Dates: start: 20140427, end: 20140427
  19. AMOXICILLIN. [Concomitant]
     Active Substance: AMOXICILLIN
     Indication: URINARY TRACT INFECTION
     Route: 065
     Dates: start: 20130206, end: 20130216
  20. CEFAZOLIN [Concomitant]
     Active Substance: CEFAZOLIN
     Route: 065
     Dates: start: 20141007, end: 20141013
  21. MAGNESIUM SULFATE. [Concomitant]
     Active Substance: MAGNESIUM SULFATE
     Route: 065
     Dates: start: 20140506, end: 20140506
  22. PREDNISOLONE. [Suspect]
     Active Substance: PREDNISOLONE
     Indication: DIFFUSE LARGE B-CELL LYMPHOMA
     Dosage: MOST RECENT DOSE PRIOR TO EVENT COMMUNITY ACQUIRED PNEUMONIA: 09/MAR/2012?MOST RECENT DOSE PRIOR TO
     Route: 048
     Dates: start: 20111205
  23. ACETAMINOPHEN. [Concomitant]
     Active Substance: ACETAMINOPHEN
     Indication: PYREXIA
     Route: 065
     Dates: start: 20111205, end: 20120515
  24. FLUDROCORTISONE [Concomitant]
     Active Substance: FLUDROCORTISONE
     Indication: PNEUMONIA
     Route: 065
     Dates: start: 20120326
  25. FLUDROCORTISONE [Concomitant]
     Active Substance: FLUDROCORTISONE
     Route: 048
     Dates: start: 20120410, end: 20120416
  26. ALEVE [Concomitant]
     Active Substance: NAPROXEN SODIUM
     Indication: PAIN IN EXTREMITY
     Route: 065
     Dates: start: 20111108, end: 201410
  27. HYDROCORTISONE. [Concomitant]
     Active Substance: HYDROCORTISONE
     Indication: PYREXIA
     Route: 065
     Dates: start: 20120109, end: 20120109
  28. HUMULIN NOS [Concomitant]
     Active Substance: INSULIN HUMAN
     Indication: DIABETES MELLITUS
     Route: 065
     Dates: start: 20120109, end: 20120109
  29. ENOXAPARIN [Concomitant]
     Active Substance: ENOXAPARIN
     Route: 065
     Dates: start: 20121117, end: 20121121
  30. MOMETASONE [Concomitant]
     Active Substance: MOMETASONE
     Route: 065
     Dates: start: 20120714, end: 20120725
  31. NACL 0.9% BOLUS [Concomitant]
     Indication: DEHYDRATION
     Route: 065
     Dates: start: 20120719, end: 20120721
  32. AMOXICILLIN SODIUM/CLAVULANATE POTASSIUM [Concomitant]
     Active Substance: AMOXICILLIN\CLAVULANATE POTASSIUM
     Indication: PNEUMONIA
     Route: 065
     Dates: start: 20121120, end: 20121127
  33. AMOXICILLIN SODIUM/CLAVULANATE POTASSIUM [Concomitant]
     Active Substance: AMOXICILLIN\CLAVULANATE POTASSIUM
     Route: 065
     Dates: end: 20120416
  34. PIPERACILLIN SODIUM [Concomitant]
     Active Substance: PIPERACILLIN SODIUM
     Indication: PNEUMONIA
     Route: 065
     Dates: start: 20121117, end: 20121120
  35. CEFAZOLIN [Concomitant]
     Active Substance: CEFAZOLIN
     Indication: CELLULITIS
     Route: 065
     Dates: start: 20140415, end: 20140415
  36. RINGERS LACTATE [Concomitant]
     Active Substance: CALCIUM CHLORIDE\POTASSIUM CHLORIDE\SODIUM CHLORIDE\SODIUM LACTATE
     Indication: ADRENAL INSUFFICIENCY
     Route: 065
     Dates: start: 20140428, end: 20140428
  37. PIPERACILLIN SODIUM/TAZOBACTAM [Concomitant]
     Active Substance: PIPERACILLIN SODIUM\TAZOBACTAM SODIUM
     Indication: SEPTIC SHOCK
     Route: 065
     Dates: start: 20140428, end: 20140504
  38. MAGNESIUM SULFATE. [Concomitant]
     Active Substance: MAGNESIUM SULFATE
     Indication: ADRENAL INSUFFICIENCY
     Route: 065
     Dates: start: 20140503, end: 20140503
  39. WARFARIN [Concomitant]
     Active Substance: WARFARIN
     Indication: DEEP VEIN THROMBOSIS
     Route: 065
     Dates: start: 20140725
  40. CYCLOPHOSPHAMIDE. [Suspect]
     Active Substance: CYCLOPHOSPHAMIDE
     Indication: DIFFUSE LARGE B-CELL LYMPHOMA
     Dosage: MOST RECENT DOSE PRIOR TO ANTHRACYCLINE CARDIOMYOPATHY, NON ST ELEVATION MI: 1670MG ON 02/APR/2012?D
     Route: 042
     Dates: start: 20111205
  41. VINCRISTINE [Suspect]
     Active Substance: VINCRISTINE
     Indication: DIFFUSE LARGE B-CELL LYMPHOMA
     Dosage: MOST RECENT DOSE PRIOR TO EVENT COMMUNITY ACQUIRED PNEUMONIA: 05/MAR/2012?MOST RECENT DOSE PRIOR TO
     Route: 040
     Dates: start: 20111205
  42. PIOGLITAZONE HYDROCHLORIDE. [Concomitant]
     Active Substance: PIOGLITAZONE HYDROCHLORIDE
     Indication: DIABETES MELLITUS
     Route: 065
     Dates: end: 20120625
  43. METFORMIN [Concomitant]
     Active Substance: METFORMIN HYDROCHLORIDE
     Indication: DIABETES MELLITUS
     Route: 048
     Dates: start: 20120410
  44. VITAMIN B12 [Concomitant]
     Active Substance: CYANOCOBALAMIN
     Indication: VITAMIN B12 DEFICIENCY
     Route: 065
     Dates: start: 20120326
  45. POTASSIUM CHLORIDE. [Concomitant]
     Active Substance: POTASSIUM CHLORIDE
     Indication: BLOOD POTASSIUM DECREASED
     Route: 065
     Dates: start: 20120703, end: 20120706
  46. IRBESARTAN. [Concomitant]
     Active Substance: IRBESARTAN
     Indication: HYPERTENSION
     Route: 065
     Dates: start: 20121117, end: 20121121
  47. ONDANSETRON [Concomitant]
     Active Substance: ONDANSETRON
     Indication: NAUSEA
     Route: 065
     Dates: start: 20121117, end: 20121120
  48. CIPROFLOXACIN. [Concomitant]
     Active Substance: CIPROFLOXACIN
     Indication: URINARY TRACT INFECTION
     Route: 065
     Dates: start: 20130225, end: 20130307
  49. OBINUTUZUMAB [Suspect]
     Active Substance: OBINUTUZUMAB
     Indication: DIFFUSE LARGE B-CELL LYMPHOMA
     Dosage: MOST RECENT DOSE PRIOR TO EVENT COMMUNITY ACQUIRED PNEUMONIA: 05/MAR/2012?MOST RECENT DOSE PRIOR TO
     Route: 042
     Dates: start: 20111205
  50. OBINUTUZUMAB [Suspect]
     Active Substance: OBINUTUZUMAB
     Dosage: DOSE CONCENTRATION OF LAST OBINUTUZUMAB: 250 MG/ML, VOLUME: 1000 ML, DATE OF MOST RECENT DOSE: 28/DE
     Route: 042
  51. OXYCOCET [Concomitant]
     Active Substance: ACETAMINOPHEN\OXYCODONE HYDROCHLORIDE
     Indication: PAIN IN EXTREMITY
     Route: 065
     Dates: start: 20120703, end: 20120704
  52. FENOFIBRATE MICRO [Concomitant]
     Active Substance: FENOFIBRATE
     Route: 065
     Dates: start: 20120410
  53. POTASSIUM CHLORIDE. [Concomitant]
     Active Substance: POTASSIUM CHLORIDE
     Route: 048
     Dates: start: 20120410
  54. HYDROCORTISONE SODIUM SUCCINATE [Concomitant]
     Active Substance: HYDROCORTISONE SODIUM SUCCINATE
     Route: 065
     Dates: start: 20140427, end: 20140427
  55. COUMADIN [Concomitant]
     Active Substance: WARFARIN SODIUM
     Indication: DEEP VEIN THROMBOSIS
     Route: 065
     Dates: start: 20140718, end: 20140724
  56. PIOGLITAZONE HYDROCHLORIDE. [Concomitant]
     Active Substance: PIOGLITAZONE HYDROCHLORIDE
     Route: 048
     Dates: start: 20120410
  57. SILVER SULFADIAZINE. [Concomitant]
     Active Substance: SILVER SULFADIAZINE
     Indication: BLISTER
     Route: 065
     Dates: start: 20120327
  58. FENTANYL. [Concomitant]
     Active Substance: FENTANYL
     Indication: PAIN
     Route: 065
     Dates: start: 20120707, end: 20120709
  59. HEPARIN (BOLUS) [Concomitant]
     Indication: THROMBOSIS
     Route: 065
     Dates: start: 20120703, end: 20120714
  60. POTASSIUM CHLORIDE. [Concomitant]
     Active Substance: POTASSIUM CHLORIDE
     Indication: ADRENAL INSUFFICIENCY
     Route: 065
     Dates: start: 20121119, end: 20121120
  61. ASCORBIC ACID. [Concomitant]
     Active Substance: ASCORBIC ACID
     Route: 065
     Dates: start: 20111118
  62. HYDROCORTISONE SODIUM SUCCINATE [Concomitant]
     Active Substance: HYDROCORTISONE SODIUM SUCCINATE
     Indication: ADRENAL INSUFFICIENCY
     Route: 065
     Dates: start: 20140415, end: 20140415
  63. HYDROCORTISONE SODIUM SUCCINATE [Concomitant]
     Active Substance: HYDROCORTISONE SODIUM SUCCINATE
     Route: 065
     Dates: start: 20140502, end: 20140502
  64. ALBUMIN [Concomitant]
     Active Substance: ALBUMIN (HUMAN)
     Indication: ADRENAL INSUFFICIENCY
     Dosage: ALBUMIN 25%
     Route: 065
     Dates: start: 20140427, end: 20140427
  65. SOLU-MEDROL [Concomitant]
     Active Substance: METHYLPREDNISOLONE SODIUM SUCCINATE
     Indication: HYPOTENSION
     Route: 065
     Dates: start: 20111216, end: 20111216
  66. SAXAGLIPTIN HYDROCHLORIDE [Concomitant]
     Active Substance: SAXAGLIPTIN HYDROCHLORIDE
     Indication: DIABETES MELLITUS
  67. FENOFIBRATE MICRO [Concomitant]
     Active Substance: FENOFIBRATE
     Indication: HYPERCHOLESTEROLAEMIA
     Route: 065
     Dates: end: 20120725
  68. OXYCOCET [Concomitant]
     Active Substance: ACETAMINOPHEN\OXYCODONE HYDROCHLORIDE
  69. HYDROCORTISONE. [Concomitant]
     Active Substance: HYDROCORTISONE
     Indication: PNEUMONIA
     Route: 065
     Dates: start: 20121117, end: 20121119
  70. COLCHICINE. [Concomitant]
     Active Substance: COLCHICINE
     Indication: PAIN
     Route: 065
     Dates: start: 20120714, end: 20120714
  71. NEUPOGEN [Concomitant]
     Active Substance: FILGRASTIM
     Route: 058
     Dates: start: 20120410, end: 20120415
  72. POTASSIUM CHLORIDE. [Concomitant]
     Active Substance: POTASSIUM CHLORIDE
     Route: 065
     Dates: start: 20140429, end: 20140429
  73. IPRATROPIUM [Concomitant]
     Active Substance: IPRATROPIUM
     Indication: PNEUMONIA
     Route: 065
     Dates: start: 20121117, end: 20121121
  74. HYDROCORTISONE SODIUM SUCCINATE [Concomitant]
     Active Substance: HYDROCORTISONE SODIUM SUCCINATE
     Route: 065
     Dates: start: 20140422, end: 20140422
  75. GRANISETRON [Concomitant]
     Active Substance: GRANISETRON
     Route: 065
     Dates: start: 20111205, end: 20120515
  76. ACETAMINOPHEN. [Concomitant]
     Active Substance: ACETAMINOPHEN
     Indication: PNEUMONIA
     Route: 065
     Dates: start: 20121117, end: 20121121
  77. ACETAMINOPHEN. [Concomitant]
     Active Substance: ACETAMINOPHEN
     Route: 065
     Dates: end: 20150408
  78. GLUCOSAMINE SULFATE [Concomitant]
     Active Substance: GLUCOSAMINE SULFATE
  79. AVAPRO [Concomitant]
     Active Substance: IRBESARTAN
     Indication: HYPERTENSION
     Route: 065
     Dates: end: 20120725
  80. HUMULIN NOS [Concomitant]
     Active Substance: INSULIN HUMAN
     Route: 065
     Dates: start: 20140430, end: 20140430
  81. HUMULIN NOS [Concomitant]
     Active Substance: INSULIN HUMAN
     Route: 065
     Dates: start: 20140423, end: 20140423
  82. ENOXAPARIN [Concomitant]
     Active Substance: ENOXAPARIN
     Indication: PNEUMONIA
     Route: 065
     Dates: start: 20120129, end: 20120129
  83. RANITIDINE [Concomitant]
     Active Substance: RANITIDINE\RANITIDINE HYDROCHLORIDE
     Route: 065
     Dates: start: 20111205, end: 20120515
  84. KETOROLAC [Concomitant]
     Active Substance: KETOROLAC\KETOROLAC TROMETHAMINE
     Indication: PAIN
     Route: 065
     Dates: start: 20120707, end: 20120725
  85. NEUPOGEN [Concomitant]
     Active Substance: FILGRASTIM
     Indication: NEUTROPENIA
     Route: 065
     Dates: start: 20120717, end: 20120720
  86. LIDOCAINE. [Concomitant]
     Active Substance: LIDOCAINE
     Dosage: 1% LIDOCAINE
     Route: 065
     Dates: start: 20140422, end: 20140422
  87. TELEBRIX [Concomitant]
     Active Substance: MEGLUMINE IOXITHALAMATE
     Route: 065
     Dates: start: 20140427, end: 20140427
  88. PIPERACILLIN SODIUM/TAZOBACTAM [Concomitant]
     Active Substance: PIPERACILLIN SODIUM\TAZOBACTAM SODIUM
     Route: 065
     Dates: end: 20120414

REACTIONS (11)
  - Acute myocardial infarction [Recovered/Resolved]
  - Pneumonia [Recovered/Resolved]
  - Pyrexia [Recovered/Resolved]
  - Neutropenia [Recovered/Resolved]
  - Herpes simplex [Recovered/Resolved]
  - Addison^s disease [Recovered/Resolved]
  - Cardiomyopathy [Recovered/Resolved]
  - Chills [Recovered/Resolved]
  - Cellulitis [Recovered/Resolved]
  - Hypotension [Recovered/Resolved]
  - Pneumonia [Recovered/Resolved]

NARRATIVE: CASE EVENT DATE: 20111216
